FAERS Safety Report 6751154-3 (Version None)
Quarter: 2010Q2

REPORT INFORMATION
  Report Type: 
  Country: None (occurrence: None)
  Receive Date: 20100602
  Receipt Date: 20100521
  Transmission Date: 20101027
  Serious: Yes (Hospitalization, Other)
  Sender: FDA-Public Use
  Company Number: ES-JNJFOC-20100503680

PATIENT
  Sex: Male

DRUGS (13)
  1. INTELENCE [Suspect]
     Indication: HIV INFECTION
     Route: 065
  2. TACROLIMUS [Interacting]
     Indication: IMMUNOSUPPRESSION
     Route: 065
  3. ISENTRESS [Concomitant]
     Indication: HIV INFECTION
  4. TRUVADA [Concomitant]
     Indication: HIV INFECTION
  5. RALTEGRAVIR [Concomitant]
     Indication: HIV INFECTION
     Route: 048
  6. TRUVADA [Concomitant]
     Route: 048
  7. TENOFOVIR [Concomitant]
  8. ATRIPLA [Concomitant]
     Indication: HIV INFECTION
  9. FORTASEC [Concomitant]
  10. ATARAX [Concomitant]
  11. LORMETAZEPAM [Concomitant]
  12. LEXATIN [Concomitant]
  13. PANTOPRAZOL [Concomitant]

REACTIONS (3)
  - CHOLESTASIS [None]
  - DRUG INTERACTION [None]
  - RASH [None]
